FAERS Safety Report 7532647-8 (Version None)
Quarter: 2011Q2

REPORT INFORMATION
  Report Type: 
  Country: None (occurrence: None)
  Receive Date: 20110608
  Receipt Date: 20110531
  Transmission Date: 20111010
  Serious: Yes (Other)
  Sender: FDA-Public Use
  Company Number: FR-GILEAD-2011-0038689

PATIENT

DRUGS (4)
  1. VIREAD [Suspect]
     Indication: HEPATITIS B
     Route: 064
     Dates: end: 20101001
  2. PROPRANOLOL [Concomitant]
     Indication: HAEMORRHAGE
     Route: 064
  3. ZEFFIX [Concomitant]
     Indication: HEPATITIS B
     Route: 064
     Dates: end: 20101001
  4. LACTULOSE [Concomitant]
     Indication: ENCEPHALOPATHY
     Route: 064

REACTIONS (1)
  - FOETAL DISTRESS SYNDROME [None]
